FAERS Safety Report 4394478-X (Version None)
Quarter: 2004Q3

REPORT INFORMATION
  Report Type: 
  Country: None (occurrence: None)
  Receive Date: 20040709
  Receipt Date: 20040709
  Transmission Date: 20050211
  Serious: Yes (Disabling)
  Sender: FDA-Public Use
  Company Number: None

PATIENT
  Age: 55 Year
  Sex: Male
  Weight: 86.1834 kg

DRUGS (2)
  1. LIPITOR [Suspect]
     Indication: BLOOD CHOLESTEROL INCREASED
     Dosage: 40/80 MG DAILY ORAL
     Route: 048
     Dates: start: 19940509, end: 20040208
  2. LIPITOR [Suspect]
     Indication: CORONARY ARTERY DISEASE
     Dosage: 40/80 MG DAILY ORAL
     Route: 048
     Dates: start: 19940509, end: 20040208

REACTIONS (1)
  - MYOCLONUS [None]
